FAERS Safety Report 6618652-4 (Version None)
Quarter: 2010Q1

REPORT INFORMATION
  Report Type: 
  Country: None (occurrence: None)
  Receive Date: 20100308
  Receipt Date: 20100302
  Transmission Date: 20100710
  Serious: Yes (Death)
  Sender: FDA-Public Use
  Company Number: US-CELGENEUS-163-20785-10011006

PATIENT
  Sex: Female

DRUGS (1)
  1. THALOMID [Suspect]
     Route: 048
     Dates: start: 20091101, end: 20091201

REACTIONS (4)
  - INTESTINAL PERFORATION [None]
  - MALIGNANT NEOPLASM PROGRESSION [None]
  - METASTASES TO NERVOUS SYSTEM [None]
  - SEPSIS [None]
